FAERS Safety Report 6974237-1 (Version None)
Quarter: 2010Q3

REPORT INFORMATION
  Report Type: 
  Country: None (occurrence: None)
  Receive Date: 20100909
  Receipt Date: 20100831
  Transmission Date: 20110219
  Serious: Yes (Hospitalization, Other)
  Sender: FDA-Public Use
  Company Number: US-ABBOTT-10P-163-0660118-00

PATIENT
  Sex: Male
  Weight: 75.364 kg

DRUGS (4)
  1. HUMIRA [Suspect]
     Indication: CROHN'S DISEASE
     Route: 058
     Dates: start: 20090401, end: 20100701
  2. HUMIRA [Suspect]
     Route: 058
     Dates: start: 20100816
  3. MORPHINE SULFATE [Concomitant]
     Indication: PAIN
  4. MORPHINE SULFATE [Concomitant]
     Indication: PAINFUL DEFAECATION

REACTIONS (6)
  - BLOOD CREATINE PHOSPHOKINASE INCREASED [None]
  - CHROMATURIA [None]
  - DEHYDRATION [None]
  - MYALGIA [None]
  - OEDEMA PERIPHERAL [None]
  - RHABDOMYOLYSIS [None]
